FAERS Safety Report 5000568-0 (Version None)
Quarter: 2006Q2

REPORT INFORMATION
  Report Type: 
  Country: None (occurrence: None)
  Receive Date: 20060512
  Receipt Date: 20060502
  Transmission Date: 20061013
  Serious: Yes (Hospitalization, Other)
  Sender: FDA-Public Use
  Company Number: DE-ABBOTT-06P-062-0332259-00

PATIENT
  Age: 36 Year
  Sex: Female

DRUGS (6)
  1. VALPROATE SODIUM [Suspect]
     Indication: PARTIAL SEIZURES
     Route: 048
  2. VALPROATE SODIUM [Suspect]
     Indication: GRAND MAL CONVULSION
  3. TOPIRAMATE [Suspect]
     Indication: PARTIAL SEIZURES
     Route: 048
  4. TOPIRAMATE [Suspect]
     Indication: GRAND MAL CONVULSION
  5. PHENOBARBITAL TAB [Suspect]
     Indication: PARTIAL SEIZURES
     Route: 048
  6. PHENOBARBITAL TAB [Suspect]
     Indication: GRAND MAL CONVULSION

REACTIONS (7)
  - ANAEMIA [None]
  - C-REACTIVE PROTEIN INCREASED [None]
  - DRUG INTERACTION [None]
  - ELECTROENCEPHALOGRAM ABNORMAL [None]
  - GAMMA-GLUTAMYLTRANSFERASE INCREASED [None]
  - HYPERAMMONAEMIA [None]
  - HYPOTHERMIA [None]
